FAERS Safety Report 6091468-6 (Version None)
Quarter: 2009Q1

REPORT INFORMATION
  Report Type: 
  Country: None (occurrence: None)
  Receive Date: 20090217
  Receipt Date: 20090213
  Transmission Date: 20090719
  Serious: Yes (Hospitalization, Other)
  Sender: FDA-Public Use
  Company Number: AEGBR200800192

PATIENT
  Age: 7 Year
  Sex: Female

DRUGS (5)
  1. IGIV (MANUFACTURER UNKNOWN) [Suspect]
     Indication: EVANS SYNDROME
     Dosage: ; IV
     Route: 042
  2. CICLOSPORINE (CICLOSPORINE) [Suspect]
     Indication: EVANS SYNDROME
  3. MYCOPHENOLATE MOFETIL [Suspect]
     Indication: EVANS SYNDROME
  4. PREDNISOLONE [Suspect]
     Indication: EVANS SYNDROME
  5. RITUXIMAB [Concomitant]

REACTIONS (8)
  - ANOREXIA [None]
  - BONE MARROW TRANSPLANT [None]
  - COUGH [None]
  - DILATATION VENTRICULAR [None]
  - LYMPHOPROLIFERATIVE DISORDER [None]
  - OXYGEN SATURATION DECREASED [None]
  - PULMONARY HYPERTENSION [None]
  - TRICUSPID VALVE INCOMPETENCE [None]
